FAERS Safety Report 7562586-8 (Version None)
Quarter: 2011Q2

REPORT INFORMATION
  Report Type: 
  Country: None (occurrence: None)
  Receive Date: 20110525
  Receipt Date: 20110419
  Transmission Date: 20111010
  Serious: No
  Sender: FDA-Public Use
  Company Number: 327049

PATIENT
  Age: 57 Year
  Sex: Male

DRUGS (1)
  1. VICTOZA [Suspect]
     Indication: PRODUCT USED FOR UNKNOWN INDICATION
     Dosage: 0.6 MG, QD, SUBCUTANEOUS
     Route: 058

REACTIONS (5)
  - INJECTION SITE URTICARIA [None]
  - DEVICE LEAKAGE [None]
  - SKIN REACTION [None]
  - INCORRECT PRODUCT STORAGE [None]
  - INJECTION SITE PAIN [None]
